FAERS Safety Report 17095270 (Version 1)
Quarter: 2019Q4

REPORT INFORMATION
  Report Type: Spontaneous
  Country: US (occurrence: US)
  Receive Date: 20191104
  Receipt Date: 20191104
  Transmission Date: 20200122
  Serious: Yes (Other)
  Sender: FDA-Public Use
  Company Number: None

PATIENT
  Age: 61 Year
  Sex: Male

DRUGS (19)
  1. LISINOPRIL. [Concomitant]
     Active Substance: LISINOPRIL
  2. PANTOPRAZOLE [Concomitant]
     Active Substance: PANTOPRAZOLE
  3. XELJANZ [Suspect]
     Active Substance: TOFACITINIB CITRATE
     Indication: RHEUMATOID ARTHRITIS
     Route: 048
     Dates: start: 20150819
  4. CRUSH VIT C [Concomitant]
  5. MELOXICAM. [Concomitant]
     Active Substance: MELOXICAM
  6. NITROSTAT [Concomitant]
     Active Substance: NITROGLYCERIN
  7. ASPIRIN. [Concomitant]
     Active Substance: ASPIRIN
  8. DIPHENHYDRAM [Concomitant]
  9. AMLODIPINE [Concomitant]
     Active Substance: AMLODIPINE BESYLATE
  10. TRAIMCINOLON [Concomitant]
  11. ATORVASTATIN [Concomitant]
     Active Substance: ATORVASTATIN
  12. MAGNESIUM [Concomitant]
     Active Substance: MAGNESIUM
  13. OMEPRAZOLE. [Concomitant]
     Active Substance: OMEPRAZOLE
  14. ATENOLOL. [Concomitant]
     Active Substance: ATENOLOL
  15. METFORMIN [Concomitant]
     Active Substance: METFORMIN HYDROCHLORIDE
  16. CIALIS [Concomitant]
     Active Substance: TADALAFIL
  17. HYDROCO/APAP [Concomitant]
     Active Substance: ACETAMINOPHEN\HYDROCODONE
  18. SIMVASTATIN. [Concomitant]
     Active Substance: SIMVASTATIN
  19. COPIDOGREL [Concomitant]

REACTIONS (1)
  - Recurrent cancer [None]

NARRATIVE: CASE EVENT DATE: 2019
